FAERS Safety Report 18343531 (Version 2)
Quarter: 2020Q4

REPORT INFORMATION
  Report Type: Spontaneous
  Country: US (occurrence: US)
  Receive Date: 20201005
  Receipt Date: 20201027
  Transmission Date: 20210113
  Serious: No
  Sender: FDA-Public Use
  Company Number: US-009507513-2010USA000271

PATIENT
  Age: 36 Year
  Sex: Female

DRUGS (7)
  1. BEDAQUILINE [Concomitant]
     Active Substance: BEDAQUILINE
  2. CLOFAZIMINE [Concomitant]
     Active Substance: CLOFAZIMINE
     Dosage: 100 MILLIGRAM, QD, IN A CUP WITH 15 ML OF HOT WATER VIA GASTROTOMY TUBE
  3. SIVEXTRO [Suspect]
     Active Substance: TEDIZOLID PHOSPHATE
     Indication: MYCOBACTERIUM AVIUM COMPLEX INFECTION
     Route: 048
  4. RIFABUTIN. [Concomitant]
     Active Substance: RIFABUTIN
  5. CLOFAZIMINE [Concomitant]
     Active Substance: CLOFAZIMINE
     Indication: MYCOBACTERIUM AVIUM COMPLEX INFECTION
     Dosage: STRENGHT: 0.52MCG/ML, 300 MILLIGRAM, QD, IN A CUP WITH 15 ML OF HOT WATER VIA GASTROTOMY TUBE
  6. AZITHROMYCIN ANHYDROUS. [Concomitant]
     Active Substance: AZITHROMYCIN ANHYDROUS
     Route: 042
  7. ETHAMBUTOL [Concomitant]
     Active Substance: ETHAMBUTOL HYDROCHLORIDE
     Dosage: VIA GASTROTOMY TUBE

REACTIONS (1)
  - Product use in unapproved indication [Unknown]
